FAERS Safety Report 5590892-5 (Version None)
Quarter: 2007Q4

REPORT INFORMATION
  Report Type: 
  Country: None (occurrence: None)
  Receive Date: 20071212
  Receipt Date: 20070611
  Transmission Date: 20080405
  Serious: Yes (Other)
  Sender: FDA-Public Use
  Company Number: USA-2007-0026782

PATIENT
  Age: 23 Year
  Sex: Male

DRUGS (1)
  1. OXYCONTIN [Suspect]
     Indication: DRUG ABUSER
     Dosage: INT

REACTIONS (6)
  - AGGRESSION [None]
  - APATHY [None]
  - DRUG ABUSER [None]
  - DRUG DEPENDENCE [None]
  - IRRITABILITY [None]
  - MOOD SWINGS [None]
